FAERS Safety Report 17629573 (Version 7)
Quarter: 2020Q2

REPORT INFORMATION
  Report Type: Spontaneous
  Country: US (occurrence: US)
  Receive Date: 20200406
  Receipt Date: 20200617
  Transmission Date: 20200713
  Serious: No
  Sender: FDA-Public Use
  Company Number: US-PFIZER INC-2020044010

PATIENT
  Age: 82 Year
  Sex: Female
  Weight: 94.8 kg

DRUGS (2)
  1. CELEBREX [Suspect]
     Active Substance: CELECOXIB
     Indication: ARTHROPATHY
     Dosage: 200 MG, 1X/DAY
     Route: 048
  2. CELEBREX [Suspect]
     Active Substance: CELECOXIB
     Indication: ARTHRITIS
     Dosage: UNK (QUANTITY FOR 90 DAYS: 90 DAYS)

REACTIONS (4)
  - Hypoacusis [Unknown]
  - Prescription drug used without a prescription [Unknown]
  - Product prescribing error [Unknown]
  - Product dispensing error [Unknown]

NARRATIVE: CASE EVENT DATE: 2018
